FAERS Safety Report 5931166-X (Version None)
Quarter: 2008Q4

REPORT INFORMATION
  Report Type: 
  Country: None (occurrence: None)
  Receive Date: 20081027
  Receipt Date: 20081020
  Transmission Date: 20090506
  Serious: Yes (Death, Hospitalization, Other)
  Sender: FDA-Public Use
  Company Number: PHHY2008SE21444

PATIENT
  Sex: Male
  Weight: 120 kg

DRUGS (14)
  1. EXJADE [Suspect]
     Indication: MYELODYSPLASTIC SYNDROME
     Dosage: 2500 MG/DAY
     Dates: start: 20080513, end: 20080531
  2. EXJADE [Suspect]
     Indication: SERUM FERRITIN INCREASED
     Dosage: 1500 MG/DAY
     Dates: start: 20080626, end: 20080714
  3. EXJADE [Suspect]
     Indication: HAEMOSIDEROSIS
  4. DESFERAL [Suspect]
     Dosage: 10 G/ 5 DAYS
     Dates: start: 20080131, end: 20080320
  5. ATENOLOL [Concomitant]
     Indication: ATRIAL FIBRILLATION
     Dosage: 50 MG, 1X1
     Dates: start: 20060501, end: 20080714
  6. FUROSEMIDE [Concomitant]
     Indication: OEDEMA PERIPHERAL
     Dosage: 40 MG, 1X1
     Dates: start: 20070307, end: 20080714
  7. FUROSEMIDE [Concomitant]
     Dosage: 40 MG, 2X2
     Dates: start: 20080714, end: 20080715
  8. DALACIN [Concomitant]
     Dosage: 300 MG, BID
     Dates: start: 20080317, end: 20080415
  9. FLAGYL [Concomitant]
     Dosage: 400 MG, TID
     Dates: start: 20080521, end: 20080605
  10. PREGABALIN [Concomitant]
     Indication: DIABETIC NEUROPATHY
     Dosage: 50 MG, 1X3
     Dates: start: 20080229, end: 20080714
  11. ALLOPURINOL [Concomitant]
     Indication: HYPERURICAEMIA
     Dosage: 300 MG, 1X1
     Dates: start: 20080301, end: 20080714
  12. PROPIOMAZINE [Concomitant]
     Indication: SLEEP DISORDER
     Dosage: 25 MG, QD
     Dates: start: 20080301, end: 20080714
  13. ACETAMINOPHEN [Concomitant]
     Indication: PAIN
     Dosage: 500 MG, 1-2X4
     Dates: start: 20071108, end: 20080714
  14. DULOXETINE [Concomitant]
     Indication: DIABETIC NEUROPATHY
     Dosage: 60 MG, 1X1
     Dates: start: 20071105, end: 20080223

REACTIONS (22)
  - ABDOMINAL DISTENSION [None]
  - ACUTE HEPATIC FAILURE [None]
  - ASCITES [None]
  - ASTHENIA [None]
  - ATRIAL FIBRILLATION [None]
  - ATRIAL FLUTTER [None]
  - BACK PAIN [None]
  - BLOOD CREATININE INCREASED [None]
  - BRAIN INJURY [None]
  - CATHETER RELATED INFECTION [None]
  - CLOSTRIDIAL INFECTION [None]
  - DYSPNOEA [None]
  - FATIGUE [None]
  - JAUNDICE [None]
  - MENTAL STATUS CHANGES [None]
  - METABOLIC ACIDOSIS [None]
  - MULTI-ORGAN FAILURE [None]
  - PLEURAL EFFUSION [None]
  - POLYNEUROPATHY [None]
  - PULMONARY EMBOLISM [None]
  - RENAL FAILURE [None]
  - TRANSFUSION REACTION [None]
